FAERS Safety Report 9219526 (Version 1)
Quarter: 2013Q2

REPORT INFORMATION
  Report Type: Spontaneous
  Country: US (occurrence: None)
  Receive Date: 20130408
  Receipt Date: 20130408
  Transmission Date: 20140414
  Serious: Yes (Other)
  Sender: FDA-Public Use
  Company Number: None

PATIENT
  Age: 47 Year
  Sex: Female
  Weight: 51.8 kg

DRUGS (1)
  1. CALCIUM CITRATE [Suspect]
     Indication: OSTEOPOROSIS
     Dosage: 250 MG  3 TIMES A DAY  BY MOUTH - CHEWABLE
     Route: 048
     Dates: start: 20130330

REACTIONS (4)
  - Headache [None]
  - Product odour abnormal [None]
  - Abdominal pain upper [None]
  - Product quality issue [None]
